FAERS Safety Report 8782030 (Version 1)
Quarter: 2012Q4

REPORT INFORMATION
  Report Type: 
  Country: US (occurrence: US)
  Receive Date: 20120913
  Receipt Date: 20120913
  Transmission Date: 20130627
  Serious: No
  Sender: FDA-Public Use
  Company Number: US-VERTEX PHARMACEUTICAL INC.-2012-020195

PATIENT
  Sex: Female
  Weight: 80 kg

DRUGS (6)
  1. VX-950 [Suspect]
     Indication: HEPATITIS C
     Dosage: 750 mg, tid
     Route: 048
     Dates: start: 201207
  2. RIBASPHERE [Suspect]
     Indication: HEPATITIS C
     Dosage: 6 DF, qd
     Route: 048
     Dates: start: 201207
  3. PEGASYS [Suspect]
     Indication: HEPATITIS C
     Dosage: 180 ?g, UNK
     Route: 058
     Dates: start: 201207
  4. LORTAB                             /00607101/ [Concomitant]
     Dosage: 1 DF, qd
     Route: 048
  5. CELEXA                             /00582602/ [Concomitant]
     Dosage: 10 mg, qd
     Route: 048
  6. FLEXERIL                           /00428402/ [Concomitant]
     Dosage: 1 DF, qd
     Route: 048

REACTIONS (3)
  - Dizziness [Unknown]
  - Fall [Unknown]
  - Haemorrhage [Unknown]
